FAERS Safety Report 6879320-7 (Version None)
Quarter: 2010Q3

REPORT INFORMATION
  Report Type: 
  Country: None (occurrence: None)
  Receive Date: 20100728
  Receipt Date: 20100722
  Transmission Date: 20110219
  Serious: Yes (Hospitalization, Other)
  Sender: FDA-Public Use
  Company Number: JP-SANOFI-AVENTIS-2010SA035078

PATIENT
  Age: 74 Year
  Sex: Male
  Weight: 55 kg

DRUGS (4)
  1. TAXOTERE [Suspect]
     Indication: ANGIOSARCOMA
     Dosage: ADMINISTERED 600MG IN TOTAL
     Route: 042
     Dates: start: 20100106, end: 20100513
  2. GRANISETRON HCL [Concomitant]
     Indication: VOMITING
     Route: 042
     Dates: start: 20100406, end: 20100513
  3. DEXAMETHASONE SODIUM PHOSPHATE [Concomitant]
     Indication: ALLERGY PROPHYLAXIS
     Route: 042
     Dates: start: 20100106, end: 20100513
  4. DEXTROSE [Concomitant]
     Route: 042
     Dates: start: 20100106, end: 20100513

REACTIONS (7)
  - ASCITES [None]
  - CARDIAC FAILURE [None]
  - MESENTERIC ARTERY THROMBOSIS [None]
  - OEDEMA [None]
  - PERICARDIAL EFFUSION [None]
  - PLEURAL EFFUSION [None]
  - PULMONARY OEDEMA [None]
